FAERS Safety Report 8969231 (Version 1)
Quarter: 2012Q4

REPORT INFORMATION
  Report Type: 
  Country: US (occurrence: US)
  Receive Date: 20121218
  Receipt Date: 20121218
  Transmission Date: 20130627
  Serious: No
  Sender: FDA-Public Use
  Company Number: US-BRISTOL-MYERS SQUIBB COMPANY-16321333

PATIENT
  Age: 52 Year
  Sex: Female
  Weight: 47 kg

DRUGS (2)
  1. ABILIFY TABS 2 MG [Suspect]
     Indication: ANXIETY
     Dosage: Duration:4-5 months
  2. SYNTHROID [Concomitant]

REACTIONS (1)
  - Coeliac disease [Unknown]
